FAERS Safety Report 4999798-3 (Version None)
Quarter: 2006Q2

REPORT INFORMATION
  Report Type: 
  Country: None (occurrence: None)
  Receive Date: 20060509
  Receipt Date: 20060502
  Transmission Date: 20061013
  Serious: Yes (Death, Hospitalization)
  Sender: FDA-Public Use
  Company Number: US-2006-008030

PATIENT
  Age: 86 Year
  Sex: Female
  Weight: 54 kg

DRUGS (2)
  1. CAMPATH [Suspect]
     Indication: CHRONIC LYMPHOCYTIC LEUKAEMIA
     Dosage: D1-5 EVERY 28 DAYS, SUBCUTANEOUS
     Route: 058
     Dates: start: 20060220, end: 20060324
  2. FLUDARA [Suspect]
     Indication: CHRONIC LYMPHOCYTIC LEUKAEMIA
     Dosage: D1-5 EVERY 28 DAYS, INTRAVENOUS
     Route: 042
     Dates: start: 20060220, end: 20060324

REACTIONS (19)
  - ABSCESS [None]
  - CHILLS [None]
  - DIARRHOEA [None]
  - FEBRILE NEUTROPENIA [None]
  - FEELING ABNORMAL [None]
  - FUNGAL INFECTION [None]
  - HEPATOMEGALY [None]
  - HYPOTHERMIA [None]
  - LIVER ABSCESS [None]
  - LUNG NEOPLASM [None]
  - LYMPHADENOPATHY [None]
  - MENTAL STATUS CHANGES [None]
  - MUCOSAL INFLAMMATION [None]
  - MULTI-ORGAN FAILURE [None]
  - NAUSEA [None]
  - PANCYTOPENIA [None]
  - PNEUMONIA ASPIRATION [None]
  - SEPTIC EMBOLUS [None]
  - SPLENIC ABSCESS [None]
